FAERS Safety Report 9049730 (Version 3)
Quarter: 2013Q4

REPORT INFORMATION
  Report Type: Report from Study
  Country: JP (occurrence: JP)
  Receive Date: 20130205
  Receipt Date: 20131119
  Transmission Date: 20140711
  Serious: Yes (Other)
  Sender: FDA-Public Use
  Company Number: JP-VERTEX PHARMACEUTICALS INC.-2013-001497

PATIENT
  Age: 43 Year
  Sex: Male

DRUGS (19)
  1. VX-950 (TELAPREVIR) [Suspect]
     Indication: CHRONIC HEPATITIS C
     Dosage: 2250 MG, QD
     Route: 048
     Dates: start: 20120412
  2. PEGINTERFERON ALFA-2B [Suspect]
     Indication: CHRONIC HEPATITIS C
     Dosage: 1.5 ?G/KG, QW
     Route: 058
     Dates: start: 20120412, end: 20120920
  3. RIBAVIRIN [Suspect]
     Indication: CHRONIC HEPATITIS C
     Dosage: 1000 MG, QD
     Route: 048
     Dates: start: 20120412, end: 20120517
  4. RIBAVIRIN [Suspect]
     Dosage: 600 MG, QD
     Route: 048
     Dates: start: 20120518, end: 20120530
  5. RIBAVIRIN [Suspect]
     Dosage: 400 MG, QD
     Route: 048
     Dates: start: 20120531, end: 20120606
  6. RIBAVIRIN [Suspect]
     Dosage: 600 MG, QD
     Route: 048
     Dates: start: 20120607, end: 20120621
  7. RIBAVIRIN [Suspect]
     Dosage: 400 MG, QD
     Route: 048
     Dates: start: 20120622, end: 20120816
  8. RIBAVIRIN [Suspect]
     Dosage: 600 MG, QD
     Route: 048
     Dates: start: 20120817, end: 20120926
  9. URSO [Concomitant]
     Dosage: 600 MG, QD
     Route: 048
     Dates: end: 20120414
  10. ZYPREXA [Concomitant]
     Dosage: 20 MG, QD/PRN
     Route: 048
  11. U-PAN [Concomitant]
     Dosage: 2.0 MG, QD/PRN
     Route: 048
  12. RISPERIDONE [Concomitant]
     Dosage: 4 MG, QD/PRN
     Route: 048
  13. ZOPICOOL [Concomitant]
     Dosage: 10 MG, QD/PRN
     Route: 048
  14. LEVOTOMIN [Concomitant]
     Dosage: 5 MG, QD/PRN
     Route: 048
  15. LENDORMIN DAINIPPO [Concomitant]
     Dosage: 0.25 MG, QD/PRN
     Route: 048
  16. TAKEPRON [Concomitant]
     Dosage: 15 MG, QD
     Route: 048
     Dates: start: 20120423
  17. XALATAN [Concomitant]
     Dosage: 7.5 ML, QD
     Route: 031
  18. XALATAN [Concomitant]
     Dosage: 7.5 ML, QD
     Route: 031
     Dates: start: 20120809, end: 20120809
  19. ZYLORIC [Concomitant]
     Dosage: 200 MG, QD
     Route: 048
     Dates: end: 20120801

REACTIONS (1)
  - Glaucoma [Not Recovered/Not Resolved]
